FAERS Safety Report 8791548 (Version 1)
Quarter: 2012Q4

REPORT INFORMATION
  Report Type: Spontaneous
  Country: FR (occurrence: None)
  Receive Date: 20120912
  Receipt Date: 20120912
  Transmission Date: 20130627
  Serious: Yes (Hospitalization, Other)
  Sender: FDA-Public Use
  Company Number: 2012MA010702

PATIENT
  Age: 77 Year
  Sex: Male

DRUGS (2)
  1. TRIAMCINOLONE ACETONIDE [Suspect]
     Indication: AGE-RELATED MACULAR DEGENERATION
     Route: 031
  2. TRIAMCINOLONE ACETONIDE [Suspect]
     Route: 031

REACTIONS (1)
  - Cytomegalovirus chorioretinitis [None]
